FAERS Safety Report 16724570 (Version 1)
Quarter: 2019Q4

REPORT INFORMATION
  Report Type: Spontaneous
  Country: US (occurrence: US)
  Receive Date: 20190820
  Receipt Date: 20190820
  Transmission Date: 20200122
  Serious: No
  Sender: FDA-Public Use
  Company Number: None

PATIENT
  Age: 66 Year
  Sex: Male
  Weight: 93.15 kg

DRUGS (6)
  1. DOXEPIN [Concomitant]
     Active Substance: DOXEPIN
  2. KLONOPIN [Concomitant]
     Active Substance: CLONAZEPAM
  3. LISINOPRIL. [Concomitant]
     Active Substance: LISINOPRIL
  4. BASAGLAR [Suspect]
     Active Substance: INSULIN GLARGINE
     Indication: DIABETES MELLITUS
     Dosage: ?          QUANTITY:1 INJECTION(S);OTHER ROUTE:INJECTION SUBCUTANEOUS?
     Dates: start: 20170331, end: 20190804
  5. OXYCODONE [Concomitant]
     Active Substance: OXYCODONE
  6. AMBIEN [Concomitant]
     Active Substance: ZOLPIDEM TARTRATE

REACTIONS (12)
  - Product use complaint [None]
  - Diabetes mellitus inadequate control [None]
  - Wrong technique in product usage process [None]
  - Product quality control issue [None]
  - Device use error [None]
  - Injection site infection [None]
  - Product substitution issue [None]
  - Product quality issue [None]
  - Injection site pain [None]
  - Device difficult to use [None]
  - Injection site erythema [None]
  - Therapy non-responder [None]

NARRATIVE: CASE EVENT DATE: 20190820
